FAERS Safety Report 10268451 (Version 2)
Quarter: 2014Q3

REPORT INFORMATION
  Report Type: Spontaneous
  Country: FR (occurrence: FR)
  Receive Date: 20140630
  Receipt Date: 20140723
  Transmission Date: 20150326
  Serious: Yes (Hospitalization)
  Sender: FDA-Public Use
  Company Number: FR-BRISTOL-MYERS SQUIBB COMPANY-21053855

PATIENT
  Age: 14 Year
  Sex: Female

DRUGS (15)
  1. NOVORAPID [Concomitant]
     Active Substance: INSULIN ASPART
  2. HYDREA [Suspect]
     Active Substance: HYDROXYUREA
     Indication: SICKLE CELL ANAEMIA
     Dosage: DOSE INCREASE TO 3/D
     Dates: start: 2009
  3. NOVOMIX [Concomitant]
     Active Substance: INSULIN ASPART
  4. DOLIPRANE [Concomitant]
     Active Substance: ACETAMINOPHEN
  5. UVESTEROL D [Concomitant]
  6. VITAMIN K [Concomitant]
     Active Substance: PHYTONADIONE
  7. SPECIAFOLDINE [Concomitant]
     Active Substance: FOLIC ACID
  8. MOPRAL [Concomitant]
     Active Substance: OMEPRAZOLE SODIUM
  9. INEXIUM [Concomitant]
     Active Substance: ESOMEPRAZOLE
  10. ASPEGIC [Concomitant]
     Active Substance: ASPIRIN DL-LYSINE
  11. LANTUS [Concomitant]
     Active Substance: INSULIN GLARGINE
  12. ATARAX [Concomitant]
     Active Substance: HYDROXYZINE\HYDROXYZINE HYDROCHLORIDE
     Indication: PRURITUS
  13. URSOLVAN [Concomitant]
     Active Substance: URSODIOL
  14. AUGMENTIN [Suspect]
     Active Substance: AMOXICILLIN\CLAVULANATE POTASSIUM
     Indication: URINARY TRACT INFECTION
     Route: 048
     Dates: start: 20140417, end: 20140422
  15. ORACILLINE [Concomitant]
     Active Substance: PENICILLIN V

REACTIONS (2)
  - Hyperbilirubinaemia [Not Recovered/Not Resolved]
  - Cholestasis [Recovered/Resolved]

NARRATIVE: CASE EVENT DATE: 20140515
